FAERS Safety Report 24002606 (Version 1)
Quarter: 2024Q2

REPORT INFORMATION
  Report Type: Report from Study
  Country: US (occurrence: US)
  Receive Date: 20240623
  Receipt Date: 20240623
  Transmission Date: 20240715
  Serious: Yes (Hospitalization)
  Sender: FDA-Public Use
  Company Number: US-ABBVIE-5807166

PATIENT
  Sex: Male

DRUGS (1)
  1. HUMIRA [Suspect]
     Active Substance: ADALIMUMAB
     Indication: Rheumatoid arthritis
     Route: 058

REACTIONS (6)
  - Limb injury [Unknown]
  - Fall [Recovering/Resolving]
  - Shoulder fracture [Unknown]
  - Foot fracture [Unknown]
  - Ankle fracture [Unknown]
  - Lower limb fracture [Unknown]
